FAERS Safety Report 6607313-3 (Version None)
Quarter: 2010Q1

REPORT INFORMATION
  Report Type: 
  Country: None (occurrence: None)
  Receive Date: 20100228
  Receipt Date: 20100216
  Transmission Date: 20100710
  Serious: Yes (Death, Other)
  Sender: FDA-Public Use
  Company Number: FR-BRISTOL-MYERS SQUIBB COMPANY-14977664

PATIENT
  Age: 41 Year
  Sex: Male

DRUGS (2)
  1. CISPLATIN [Suspect]
     Indication: LUNG NEOPLASM
     Dosage: ON DAY 1
     Route: 042
  2. GEMCITABINE [Suspect]
     Indication: LUNG NEOPLASM
     Dosage: ON DAY 1 NO. OF INF:8
     Route: 042

REACTIONS (4)
  - BONE MARROW FAILURE [None]
  - HAEMORRHAGE INTRACRANIAL [None]
  - INTESTINAL HAEMORRHAGE [None]
  - REVERSIBLE POSTERIOR LEUKOENCEPHALOPATHY SYNDROME [None]
